FAERS Safety Report 17646964 (Version 1)
Quarter: 2020Q2

REPORT INFORMATION
  Report Type: Spontaneous
  Country: US (occurrence: US)
  Receive Date: 20200409
  Receipt Date: 20200409
  Transmission Date: 20200713
  Serious: No
  Sender: FDA-Public Use
  Company Number: US-ASTRAZENECA-2020SE40136

PATIENT
  Sex: Male

DRUGS (13)
  1. METFORMIN [Concomitant]
     Active Substance: METFORMIN HYDROCHLORIDE
  2. DOXYCYCLINE. [Concomitant]
     Active Substance: DOXYCYCLINE
  3. FISH OIL [Concomitant]
     Active Substance: FISH OIL
  4. CLONAZEPAM. [Concomitant]
     Active Substance: CLONAZEPAM
  5. FINASTRIDE [Concomitant]
     Active Substance: FINASTERIDE
  6. MIRAPEX [Concomitant]
     Active Substance: PRAMIPEXOLE DIHYDROCHLORIDE
  7. FARXIGA [Concomitant]
     Active Substance: DAPAGLIFLOZIN PROPANEDIOL
  8. FAMOTIDINE. [Concomitant]
     Active Substance: FAMOTIDINE
  9. BYDUREON [Suspect]
     Active Substance: EXENATIDE
     Indication: DIABETES MELLITUS
     Route: 065
  10. GLYMPIRIDE [Concomitant]
  11. FENOFIBRATE. [Concomitant]
     Active Substance: FENOFIBRATE
  12. GABAPENTIN. [Concomitant]
     Active Substance: GABAPENTIN
  13. VITAMINS [Concomitant]
     Active Substance: VITAMINS

REACTIONS (2)
  - Injection site nodule [Unknown]
  - Diabetic neuropathy [Unknown]
